FAERS Safety Report 16702157 (Version 2)
Quarter: 2019Q3

REPORT INFORMATION
  Report Type: Spontaneous
  Country: AT (occurrence: AT)
  Receive Date: 20190814
  Receipt Date: 20190820
  Transmission Date: 20191004
  Serious: Yes (Death, Other)
  Sender: FDA-Public Use
  Company Number: AT-ACTELION-A-CH2019-194206

PATIENT
  Age: 66 Year
  Sex: Male

DRUGS (6)
  1. OPSUMIT [Suspect]
     Active Substance: MACITENTAN
     Indication: PULMONARY ARTERIAL HYPERTENSION
     Dosage: 10 MG, QD
     Route: 048
     Dates: start: 20160913, end: 20190714
  2. SILDENAFIL. [Concomitant]
     Active Substance: SILDENAFIL
     Dosage: 20 MG, TID
  3. FUROSEMID [Concomitant]
     Active Substance: FUROSEMIDE
     Dosage: 500 MG, QD
  4. UPTRAVI [Suspect]
     Active Substance: SELEXIPAG
     Indication: PULMONARY ARTERIAL HYPERTENSION
     Dosage: UNK
     Route: 048
     Dates: start: 20170322, end: 20190714
  5. AMBRISENTAN [Concomitant]
     Active Substance: AMBRISENTAN
     Dosage: UNK
     Dates: start: 20160913, end: 20190714
  6. LEVOTHYROXINE. [Concomitant]
     Active Substance: LEVOTHYROXINE
     Dosage: 125 MCG, QD

REACTIONS (6)
  - Right ventricular failure [Unknown]
  - Renal failure [Unknown]
  - Pericardial effusion [Unknown]
  - Respiratory failure [Fatal]
  - Disease progression [Unknown]
  - Pulmonary arterial hypertension [Unknown]
